FAERS Safety Report 21161558 (Version 1)
Quarter: 2022Q3

REPORT INFORMATION
  Report Type: Spontaneous
  Country: NL (occurrence: NL)
  Receive Date: 20220802
  Receipt Date: 20220802
  Transmission Date: 20221027
  Serious: Yes (Disabling)
  Sender: FDA-Public Use
  Company Number: None

PATIENT
  Sex: Female
  Weight: 59 kg

DRUGS (10)
  1. ATORVASTATIN CALCIUM [Suspect]
     Active Substance: ATORVASTATIN CALCIUM
     Indication: Type IIa hyperlipidaemia
     Dosage: 5 MG, 1X/DAY
     Dates: start: 2020
  2. ISOSORBIDE DINITRATE [Suspect]
     Active Substance: ISOSORBIDE DINITRATE
     Indication: Vasospasm
     Dosage: 1X/DAY
     Dates: start: 202112
  3. IVABRADINE [Suspect]
     Active Substance: IVABRADINE
     Indication: Sinus tachycardia
     Dosage: 7.5 MG, 2X/DAY
     Dates: start: 202109
  4. IVABRADINE [Suspect]
     Active Substance: IVABRADINE
     Dosage: FREQ:12 H;2X PER DAG 1 TABLET
     Dates: start: 202109
  5. ZINC [Concomitant]
     Active Substance: ZINC
  6. CHOLECALCIFEROL [Concomitant]
     Active Substance: CHOLECALCIFEROL
     Dosage: 50 MCG TABL
  7. ASCORBIC ACID [Concomitant]
     Active Substance: ASCORBIC ACID
     Dosage: 500 MG TABL
  8. CALCIUM [Concomitant]
     Active Substance: CALCIUM
     Dosage: 1000 MG TABL
  9. CYANOCOBALAMIN [Concomitant]
     Active Substance: CYANOCOBALAMIN
     Dosage: 1000MCG TABL
  10. MAGNESIUM CITRATE [Concomitant]
     Active Substance: MAGNESIUM CITRATE
     Dosage: 200 MG TABL

REACTIONS (2)
  - Pseudohypoglycaemia [Recovering/Resolving]
  - Weight decreased [Recovering/Resolving]
